FAERS Safety Report 5387508-X (Version None)
Quarter: 2007Q3

REPORT INFORMATION
  Report Type: 
  Country: None (occurrence: None)
  Receive Date: 20070716
  Receipt Date: 20070705
  Transmission Date: 20080115
  Serious: Yes (Other)
  Sender: FDA-Public Use
  Company Number: US-AMGEN-STX232673

PATIENT
  Sex: Female

DRUGS (1)
  1. ENBREL [Suspect]
     Indication: ANKYLOSING SPONDYLITIS
     Route: 058
     Dates: start: 20050801

REACTIONS (4)
  - ANKYLOSING SPONDYLITIS [None]
  - MENOPAUSE [None]
  - NODULE [None]
  - THYROID NEOPLASM [None]
